FAERS Safety Report 9215432 (Version 1)
Quarter: 2013Q2

REPORT INFORMATION
  Report Type: Report from Study
  Country: RU (occurrence: RU)
  Receive Date: 20130405
  Receipt Date: 20130405
  Transmission Date: 20140414
  Serious: Yes (Hospitalization, Other)
  Sender: FDA-Public Use
  Company Number: RU-AMGEN-KDC390622

PATIENT
  Age: 62 Year
  Sex: Male

DRUGS (4)
  1. DENOSUMAB [Suspect]
     Indication: PROSTATE CANCER
     Dosage: UNK UNK, Q4WK
     Route: 058
     Dates: start: 20080513, end: 20090714
  2. BUSERELIN ACETATE [Concomitant]
  3. CALCIUM [Concomitant]
  4. ERGOCALCIFEROL [Concomitant]

REACTIONS (1)
  - Osteonecrosis of jaw [Recovered/Resolved]
